FAERS Safety Report 5306897-5 (Version None)
Quarter: 2007Q2

REPORT INFORMATION
  Report Type: 
  Country: None (occurrence: None)
  Receive Date: 20070425
  Receipt Date: 20070412
  Transmission Date: 20071010
  Serious: Yes (Other)
  Sender: FDA-Public Use
  Company Number: PHEH2007US05294

PATIENT
  Sex: Male

DRUGS (1)
  1. LAMISIL [Suspect]
     Route: 048
     Dates: start: 20070101

REACTIONS (3)
  - EXPIRED DRUG ADMINISTERED [None]
  - KERATOACANTHOMA [None]
  - SQUAMOUS CELL CARCINOMA [None]
